FAERS Safety Report 24909292 (Version 1)
Quarter: 2025Q1

REPORT INFORMATION
  Report Type: Spontaneous
  Country: US (occurrence: None)
  Receive Date: 20250130
  Receipt Date: 20250130
  Transmission Date: 20250408
  Serious: Yes (Death)
  Sender: FDA-CTU
  Company Number: None

PATIENT
  Age: 67 Year
  Sex: Male

DRUGS (1)
  1. AMBRISENTAN [Suspect]
     Active Substance: AMBRISENTAN
     Indication: Pulmonary hypertension
     Dosage: FREQUENCY : DAILY;?
     Route: 048
     Dates: start: 20241227, end: 20250124

REACTIONS (5)
  - Hypervolaemia [None]
  - Respiratory failure [None]
  - Cardiogenic shock [None]
  - Deep vein thrombosis [None]
  - General physical health deterioration [None]

NARRATIVE: CASE EVENT DATE: 20250124
